FAERS Safety Report 14034049 (Version 1)
Quarter: 2017Q4

REPORT INFORMATION
  Report Type: Spontaneous
  Country: GB (occurrence: GB)
  Receive Date: 20171003
  Receipt Date: 20171003
  Transmission Date: 20180321
  Serious: Yes (Death)
  Sender: FDA-Public Use
  Company Number: GB-JNJFOC-20171000122

PATIENT
  Age: 45 Year
  Sex: Male

DRUGS (5)
  1. RISPERIDONE. [Suspect]
     Active Substance: RISPERIDONE
     Indication: LEARNING DISABILITY
     Route: 065
     Dates: start: 20060630
  2. HALOPERIDOL. [Concomitant]
     Active Substance: HALOPERIDOL
     Route: 065
  3. PREGABALIN. [Concomitant]
     Active Substance: PREGABALIN
     Route: 065
  4. EPILIM [Concomitant]
     Active Substance: VALPROATE SODIUM
     Route: 065
  5. KEPPRA [Concomitant]
     Active Substance: LEVETIRACETAM
     Route: 065

REACTIONS (4)
  - Product use in unapproved indication [Unknown]
  - Hyponatraemia [Not Recovered/Not Resolved]
  - Off label use [Unknown]
  - Cardiac disorder [Fatal]

NARRATIVE: CASE EVENT DATE: 20060630
